FAERS Safety Report 14534811 (Version 3)
Quarter: 2019Q4

REPORT INFORMATION
  Report Type: Spontaneous
  Country: US (occurrence: US)
  Receive Date: 20180215
  Receipt Date: 20191126
  Transmission Date: 20200122
  Serious: Yes (Hospitalization)
  Sender: FDA-Public Use
  Company Number: US-PFIZER INC-2018063814

PATIENT
  Age: 70 Year
  Sex: Female
  Weight: 68 kg

DRUGS (1)
  1. IBRANCE [Suspect]
     Active Substance: PALBOCICLIB
     Indication: BREAST CANCER FEMALE
     Dosage: 75 MG, CYCLIC(75MG FOR 21 DAYS AND THEN OFF 7 DAYS)

REACTIONS (4)
  - Depression [Unknown]
  - Glycosylated haemoglobin increased [Unknown]
  - Cerebrovascular accident [Recovering/Resolving]
  - Fatigue [Unknown]
